FAERS Safety Report 6127674-1 (Version None)
Quarter: 2009Q1

REPORT INFORMATION
  Report Type: 
  Country: None (occurrence: None)
  Receive Date: 20090323
  Receipt Date: 20090319
  Transmission Date: 20090719
  Serious: Yes (Other)
  Sender: FDA-Public Use
  Company Number: GR-ABBOTT-09P-066-0498270-00

PATIENT
  Age: 55 Year
  Sex: Male
  Weight: 91 kg

DRUGS (19)
  1. HUMIRA [Suspect]
     Indication: RHEUMATOID ARTHRITIS
     Route: 058
     Dates: start: 20080903, end: 20080916
  2. T4 [Concomitant]
     Indication: HYPOTHYROIDISM
     Route: 048
     Dates: start: 20000101
  3. PLAQUENIL [Concomitant]
     Indication: RHEUMATOID ARTHRITIS
     Route: 048
     Dates: start: 20020101
  4. LOPRESSOR [Concomitant]
     Indication: CORONARY ARTERY DISEASE
     Route: 048
     Dates: start: 19860101
  5. LOPRESSOR [Concomitant]
     Indication: HYPERTENSION
  6. NORVASC [Concomitant]
     Indication: CORONARY ARTERY DISEASE
     Route: 048
     Dates: start: 19860101
  7. NORVASC [Concomitant]
     Indication: HYPERTENSION
  8. IMDUR [Concomitant]
     Indication: CORONARY ARTERY DISEASE
     Route: 048
     Dates: start: 19860101
  9. IMDUR [Concomitant]
     Indication: HYPERTENSION
  10. PLAVIX [Concomitant]
     Indication: CORONARY ARTERY DISEASE
     Route: 048
     Dates: start: 19860101
  11. PLAVIX [Concomitant]
     Indication: HYPERTENSION
  12. CRESTOR [Concomitant]
     Indication: CORONARY ARTERY DISEASE
     Route: 048
     Dates: start: 19980101
  13. CRESTOR [Concomitant]
     Indication: DYSLIPIDAEMIA
  14. OLMETEC [Concomitant]
     Indication: CORONARY ARTERY DISEASE
     Route: 048
     Dates: start: 19860101
  15. OLMETEC [Concomitant]
     Indication: HYPERTENSION
  16. SALOSPIR [Concomitant]
     Indication: CORONARY ARTERY DISEASE
     Route: 048
     Dates: start: 19860101
  17. ARAVA [Concomitant]
     Indication: RHEUMATOID ARTHRITIS
     Route: 048
     Dates: start: 20040329
  18. DIANICOTYL [Concomitant]
     Indication: PROPHYLAXIS
     Route: 048
     Dates: start: 20080702
  19. BESIX [Concomitant]
     Indication: PROPHYLAXIS
     Route: 048
     Dates: start: 20080702

REACTIONS (1)
  - ACUTE MYOCARDIAL INFARCTION [None]
